FAERS Safety Report 7743980-9 (Version None)
Quarter: 2011Q3

REPORT INFORMATION
  Report Type: 
  Country: None (occurrence: None)
  Receive Date: 20110912
  Receipt Date: 20110125
  Transmission Date: 20111222
  Serious: No
  Sender: FDA-Public Use
  Company Number: US-BAYER-2011-005449

PATIENT
  Age: 31 Year
  Sex: Female

DRUGS (1)
  1. MIRENA [Suspect]
     Indication: CONTRACEPTION
     Dosage: 20 ?G/D, CONT
     Route: 015
     Dates: start: 20101217, end: 20110106

REACTIONS (4)
  - VAGINAL HAEMORRHAGE [None]
  - DEVICE EXPULSION [None]
  - HORMONE LEVEL ABNORMAL [None]
  - MEDICAL DEVICE COMPLICATION [None]
